FAERS Safety Report 11169937 (Version 2)
Quarter: 2015Q2

REPORT INFORMATION
  Report Type: Spontaneous
  Country: CN (occurrence: None)
  Receive Date: 20150604
  Receipt Date: 20150611
  Transmission Date: 20150821
  Serious: Yes (Hospitalization, Other)
  Sender: FDA-Public Use
  Company Number: CN2015GSK072760

PATIENT
  Sex: Male

DRUGS (2)
  1. HEPTODIN [Suspect]
     Active Substance: LAMIVUDINE
     Indication: ASCITES
     Route: 048
     Dates: start: 200202, end: 200210
  2. HEPTODIN [Suspect]
     Active Substance: LAMIVUDINE
     Indication: HEPATITIS B
     Route: 048
     Dates: start: 200202, end: 200210

REACTIONS (9)
  - Hepatic failure [None]
  - Product quality issue [None]
  - Cough [None]
  - Abdominal discomfort [None]
  - Hepatitis B DNA increased [None]
  - Diarrhoea [None]
  - Decreased appetite [None]
  - Suspected counterfeit product [None]
  - Hepatic function abnormal [None]

NARRATIVE: CASE EVENT DATE: 200302
